FAERS Safety Report 7584810-8 (Version None)
Quarter: 2011Q2

REPORT INFORMATION
  Report Type: 
  Country: None (occurrence: None)
  Receive Date: 20110630
  Receipt Date: 20110623
  Transmission Date: 20111010
  Serious: Yes (Other)
  Sender: FDA-Public Use
  Company Number: PHHY2011ZA56543

PATIENT
  Sex: Female

DRUGS (8)
  1. ZOLEDRONIC ACID [Suspect]
     Indication: OSTEOPOROSIS
     Dosage: 5 MG/100ML
     Route: 042
     Dates: start: 20100301
  2. ASPIRIN [Concomitant]
  3. INDAPAMIDE [Concomitant]
     Dosage: 1.5 MG, DAILY
  4. ATORVASTATIN [Concomitant]
  5. PERINDOPRIL ERBUMINE [Concomitant]
     Dosage: 20 MG, DAILY
  6. PERINDOPRIL ERBUMINE [Concomitant]
     Dosage: 10 MG, DAILY
  7. CARVEDILOL [Concomitant]
     Dosage: 12.5 MG, BID
  8. PROTOS [Concomitant]

REACTIONS (3)
  - MALAISE [None]
  - CARDIAC DISORDER [None]
  - ATRIAL FIBRILLATION [None]
